FAERS Safety Report 23876251 (Version 1)
Quarter: 2024Q2

REPORT INFORMATION
  Report Type: Spontaneous
  Country: CN (occurrence: CN)
  Receive Date: 20240520
  Receipt Date: 20240520
  Transmission Date: 20240716
  Serious: Yes (Life-Threatening, Hospitalization, Other)
  Sender: FDA-Public Use
  Company Number: CN-Jiangsu Hansoh Pharmaceutical Co., Ltd-2157225

PATIENT
  Age: 70 Year
  Sex: Male
  Weight: 72 kg

DRUGS (1)
  1. DECITABINE [Suspect]
     Active Substance: DECITABINE
     Indication: Acute myeloid leukaemia
     Route: 041
     Dates: start: 20240312, end: 20240316

REACTIONS (3)
  - Myelosuppression [Recovering/Resolving]
  - Off label use [Unknown]
  - Infection [Unknown]

NARRATIVE: CASE EVENT DATE: 20240312
